FAERS Safety Report 8824791 (Version 2)
Quarter: 2012Q4

REPORT INFORMATION
  Report Type: Report from Study
  Country: AU (occurrence: AU)
  Receive Date: 20121004
  Receipt Date: 20121015
  Transmission Date: 20130627
  Serious: Yes (Hospitalization)
  Sender: FDA-Public Use
  Company Number: AU-JNJFOC-20120905066

PATIENT
  Age: 36 None
  Sex: Female

DRUGS (1)
  1. REMICADE [Suspect]
     Indication: CROHN^S DISEASE
     Route: 042
     Dates: start: 20090701

REACTIONS (3)
  - Crohn^s disease [Recovering/Resolving]
  - Stress [Unknown]
  - Herpes zoster [Recovering/Resolving]
